FAERS Safety Report 10259172 (Version 1)
Quarter: 2014Q2

REPORT INFORMATION
  Report Type: Report from Study
  Country: US (occurrence: US)
  Receive Date: 20140625
  Receipt Date: 20140625
  Transmission Date: 20141212
  Serious: Yes (Other)
  Sender: FDA-Public Use
  Company Number: PHEH2014US012610

PATIENT
  Sex: Male

DRUGS (12)
  1. EXELON PATCH [Suspect]
     Dosage: 4.6 MG, DAILY
     Route: 062
  2. EXELON PATCH [Suspect]
     Dosage: 9.5 MG, DAILY
     Route: 062
  3. EXELON PATCH [Suspect]
     Dosage: 13.3 MG, DAILY
     Route: 062
     Dates: start: 201401, end: 20140125
  4. EXELON PATCH [Suspect]
     Dosage: 9.5 MG, DAILY
     Route: 062
  5. CARBIDOPA/LEVODOPA [Concomitant]
     Dosage: UNK UKN, UNK
  6. PRAMIPEXOLE [Concomitant]
     Dosage: UNK UKN, UNK
  7. BENAZEPRIL [Concomitant]
     Dosage: UNK UKN, UNK
  8. RANITIDINE [Concomitant]
     Dosage: UNK UKN, UNK
  9. ASPIRIN [Concomitant]
     Dosage: UNK UKN, UNK
  10. ALLEGRA [Concomitant]
     Dosage: UNK UKN, UNK
  11. SELEGILINE [Concomitant]
     Dosage: 5 MG, UNK
  12. AMEX [Concomitant]
     Dosage: UNK UKN, UNK

REACTIONS (3)
  - Delusion [Unknown]
  - Decreased appetite [Unknown]
  - Insomnia [Unknown]
